FAERS Safety Report 8288359-9 (Version None)
Quarter: 2012Q2

REPORT INFORMATION
  Report Type: 
  Country: None (occurrence: None)
  Receive Date: 20120416
  Receipt Date: 20120412
  Transmission Date: 20120825
  Serious: Yes (Other)
  Sender: FDA-Public Use
  Company Number: GB-PFIZER INC-2012090912

PATIENT
  Age: 59 Year
  Sex: Female
  Weight: 63.95 kg

DRUGS (4)
  1. EZETIMIBE [Concomitant]
     Dosage: UNK
  2. CANDESARTAN CILEXETIL [Concomitant]
     Dosage: UNK
  3. DOXAZOSIN MESYLATE [Suspect]
     Dosage: UNK
  4. ATENOLOL [Concomitant]
     Dosage: UNK

REACTIONS (4)
  - MUSCULOSKELETAL PAIN [None]
  - PAIN IN EXTREMITY [None]
  - GAIT DISTURBANCE [None]
  - MUSCULAR WEAKNESS [None]
